FAERS Safety Report 18331094 (Version 2)
Quarter: 2020Q4

REPORT INFORMATION
  Report Type: Spontaneous
  Country: US (occurrence: US)
  Receive Date: 20200930
  Receipt Date: 20201009
  Transmission Date: 20210113
  Serious: Yes (Hospitalization, Other)
  Sender: FDA-Public Use
  Company Number: US-ASTRAZENECA-2020SF25149

PATIENT
  Age: 15309 Day
  Sex: Female
  Weight: 205.9 kg

DRUGS (53)
  1. XIGDUO XR [Suspect]
     Active Substance: DAPAGLIFLOZIN PROPANEDIOL\METFORMIN HYDROCHLORIDE
     Indication: WEIGHT DECREASED
     Route: 048
     Dates: start: 20170627
  2. BYDUREON [Concomitant]
     Active Substance: EXENATIDE
  3. LOVENOX [Concomitant]
     Active Substance: ENOXAPARIN SODIUM
  4. SULBACTAM [Concomitant]
     Active Substance: SULBACTAM
  5. DIAZEPAM. [Concomitant]
     Active Substance: DIAZEPAM
  6. OLMSRTN-AMLDPN-HCTZ [Concomitant]
  7. FLUTICASONE. [Concomitant]
     Active Substance: FLUTICASONE
  8. CEFEPIME [Concomitant]
     Active Substance: CEFEPIME HYDROCHLORIDE
  9. METFORMIN [Concomitant]
     Active Substance: METFORMIN HYDROCHLORIDE
  10. SULFAMETHOXAZOLE [Concomitant]
     Active Substance: SULFAMETHOXAZOLE
  11. PENICILLIN [Concomitant]
     Active Substance: PENICILLIN
  12. TRIMETHOPRIM. [Concomitant]
     Active Substance: TRIMETHOPRIM
  13. OXYCODONE [Concomitant]
     Active Substance: OXYCODONE
  14. HUMALOG [Concomitant]
     Active Substance: INSULIN LISPRO
  15. METOCLOPRAMIDE. [Concomitant]
     Active Substance: METOCLOPRAMIDE
  16. TRAMADOL. [Concomitant]
     Active Substance: TRAMADOL
  17. GLUCAGON. [Concomitant]
     Active Substance: GLUCAGON
  18. SENNA [Concomitant]
     Active Substance: SENNA LEAF\SENNOSIDES\SENNOSIDES A AND B
  19. BISACODYL. [Concomitant]
     Active Substance: BISACODYL
  20. LACTIC ACID. [Concomitant]
     Active Substance: LACTIC ACID
  21. XIGDUO XR [Suspect]
     Active Substance: DAPAGLIFLOZIN PROPANEDIOL\METFORMIN HYDROCHLORIDE
     Indication: WEIGHT DECREASED
     Route: 048
     Dates: start: 20170627, end: 201709
  22. XIGDUO XR [Suspect]
     Active Substance: DAPAGLIFLOZIN PROPANEDIOL\METFORMIN HYDROCHLORIDE
     Indication: BLOOD PRESSURE DECREASED
     Route: 048
     Dates: start: 20170627, end: 201709
  23. XIGDUO XR [Suspect]
     Active Substance: DAPAGLIFLOZIN PROPANEDIOL\METFORMIN HYDROCHLORIDE
     Indication: TYPE 2 DIABETES MELLITUS
     Route: 048
     Dates: start: 20170627
  24. XIGDUO XR [Suspect]
     Active Substance: DAPAGLIFLOZIN PROPANEDIOL\METFORMIN HYDROCHLORIDE
     Indication: BLOOD PRESSURE DECREASED
     Route: 048
     Dates: start: 20170627
  25. METOPROLOL TARTRATE. [Concomitant]
     Active Substance: METOPROLOL TARTRATE
  26. IMIPENEM [Concomitant]
     Active Substance: IMIPENEM
  27. PIPERACILLIN. [Concomitant]
     Active Substance: PIPERACILLIN SODIUM
  28. TETRACYCLINE [Concomitant]
     Active Substance: TETRACYCLINE
  29. LEVOTHYROXINE. [Concomitant]
     Active Substance: LEVOTHYROXINE
  30. LYRICA [Concomitant]
     Active Substance: PREGABALIN
  31. MAGNESIUM [Concomitant]
     Active Substance: MAGNESIUM
  32. AMOXICILLIN-CLAVULANATE [Concomitant]
     Active Substance: AMOXICILLIN\CLAVULANIC ACID
  33. AZTREONAM. [Concomitant]
     Active Substance: AZTREONAM
  34. TAZOBACTAM [Concomitant]
     Active Substance: TAZOBACTAM
  35. NORVASC [Concomitant]
     Active Substance: AMLODIPINE BESYLATE
  36. XIGDUO XR [Suspect]
     Active Substance: DAPAGLIFLOZIN PROPANEDIOL\METFORMIN HYDROCHLORIDE
     Indication: TYPE 2 DIABETES MELLITUS
     Route: 048
     Dates: start: 20170627, end: 201709
  37. ATORVASTATIN [Concomitant]
     Active Substance: ATORVASTATIN
  38. CYCLOBENZAPRINE. [Concomitant]
     Active Substance: CYCLOBENZAPRINE
  39. GLUCOSE [Concomitant]
     Active Substance: DEXTROSE
  40. FENTANYL. [Concomitant]
     Active Substance: FENTANYL
  41. AMIKACIN. [Concomitant]
     Active Substance: AMIKACIN
  42. CEFTRIAXONE. [Concomitant]
     Active Substance: CEFTRIAXONE
  43. DOCUSATE SODIUM. [Concomitant]
     Active Substance: DOCUSATE SODIUM
  44. LEVEMIR [Concomitant]
     Active Substance: INSULIN DETEMIR
  45. AMLODIPINE BESYLATE. [Concomitant]
     Active Substance: AMLODIPINE BESYLATE
  46. HYDROCHLOROTHIAZIDE. [Concomitant]
     Active Substance: HYDROCHLOROTHIAZIDE
  47. HYDROCODONE-ACETAMIN [Concomitant]
     Active Substance: ACETAMINOPHEN\HYDROCODONE
  48. ERTAPENEM. [Concomitant]
     Active Substance: ERTAPENEM SODIUM
  49. MAGNESIUM SULPHATE [Concomitant]
     Active Substance: MAGNESIUM SULFATE
  50. CIPROFLOXACIN. [Concomitant]
     Active Substance: CIPROFLOXACIN
  51. GENTAMYCIN [Concomitant]
     Active Substance: GENTAMICIN
  52. MEROPENEM. [Concomitant]
     Active Substance: MEROPENEM
  53. POLYETHYLENE GLYCOL [Concomitant]
     Active Substance: POLYETHYLENE GLYCOLS

REACTIONS (9)
  - Cellulitis [Unknown]
  - Necrotising fasciitis [Unknown]
  - Abscess limb [Unknown]
  - Perineal cellulitis [Unknown]
  - Necrotising soft tissue infection [Unknown]
  - Fournier^s gangrene [Unknown]
  - Groin abscess [Unknown]
  - Sepsis [Unknown]
  - Perineal abscess [Unknown]

NARRATIVE: CASE EVENT DATE: 20170815
